FAERS Safety Report 4711531-9 (Version None)
Quarter: 2005Q3

REPORT INFORMATION
  Report Type: 
  Country: None (occurrence: None)
  Receive Date: 20050708
  Receipt Date: 20050708
  Transmission Date: 20060218
  Serious: Yes (Other)
  Sender: FDA-Public Use
  Company Number: None

PATIENT
  Age: 81 Year
  Sex: Male
  Weight: 129.7 kg

DRUGS (1)
  1. FOSINOPRIL [Suspect]
     Indication: HYPERTENSION
     Dosage: 40 MG, 40 MG QD, ORAL
     Route: 048
     Dates: start: 20050505, end: 20050521

REACTIONS (1)
  - ANGIONEUROTIC OEDEMA [None]
